FAERS Safety Report 23227811 (Version 1)
Quarter: 2023Q4

REPORT INFORMATION
  Report Type: Report from Study
  Country: US (occurrence: US)
  Receive Date: 20231125
  Receipt Date: 20231125
  Transmission Date: 20240110
  Serious: No
  Sender: FDA-Public Use
  Company Number: US-002147023-NVSC2023US250838

PATIENT
  Sex: Female

DRUGS (1)
  1. KESIMPTA [Suspect]
     Active Substance: OFATUMUMAB
     Indication: Multiple sclerosis
     Route: 065

REACTIONS (6)
  - Pain [Unknown]
  - Lethargy [Unknown]
  - Nausea [Unknown]
  - Pallor [Unknown]
  - Hypoaesthesia [Unknown]
  - Anxiety [Unknown]
